FAERS Safety Report 11152041 (Version 1)
Quarter: 2015Q2

REPORT INFORMATION
  Report Type: Spontaneous
  Country: JP (occurrence: JP)
  Receive Date: 20150601
  Receipt Date: 20150601
  Transmission Date: 20150821
  Serious: Yes (Other)
  Sender: FDA-Public Use
  Company Number: JP-PFIZER INC-2015182116

PATIENT
  Age: 84 Year
  Sex: Male

DRUGS (2)
  1. NORVASC [Suspect]
     Active Substance: AMLODIPINE BESYLATE
     Route: 048
  2. ANPLAG [Concomitant]
     Active Substance: SARPOGRELATE

REACTIONS (1)
  - Acute myeloid leukaemia [Unknown]
